FAERS Safety Report 19076459 (Version 3)
Quarter: 2021Q2

REPORT INFORMATION
  Report Type: Spontaneous
  Country: CA (occurrence: CA)
  Receive Date: 20210331
  Receipt Date: 20210428
  Transmission Date: 20210717
  Serious: Yes (Other)
  Sender: FDA-Public Use
  Company Number: CA-ROCHE-2799555

PATIENT
  Sex: Female
  Weight: 105 kg

DRUGS (1)
  1. AVASTIN [Suspect]
     Active Substance: BEVACIZUMAB
     Indication: COLORECTAL CANCER
     Route: 042
     Dates: start: 20210301

REACTIONS (6)
  - Dry mouth [Unknown]
  - Fatigue [Not Recovered/Not Resolved]
  - Cognitive disorder [Unknown]
  - Vomiting [Not Recovered/Not Resolved]
  - Oesophagitis [Unknown]
  - Nausea [Not Recovered/Not Resolved]
